FAERS Safety Report 5536805-3 (Version None)
Quarter: 2007Q4

REPORT INFORMATION
  Report Type: 
  Country: None (occurrence: None)
  Receive Date: 20071204
  Receipt Date: 20071116
  Transmission Date: 20080405
  Serious: Yes (Hospitalization)
  Sender: FDA-Public Use
  Company Number: S07-UKI-06079-01

PATIENT
  Sex: Male

DRUGS (4)
  1. CITALOPRAM HYDROBROMIDE [Suspect]
     Indication: ANXIETY
     Dosage: 20 MS QD; PO
     Route: 048
     Dates: start: 20060822, end: 20070925
  2. CITALOPRAM HYDROBROMIDE [Suspect]
     Indication: DEPRESSION
     Dosage: 20 MS QD; PO
     Route: 048
     Dates: start: 20060822, end: 20070925
  3. LOSARTAN POTASSIUM [Concomitant]
  4. ATORVASTATIN [Concomitant]

REACTIONS (1)
  - HOMICIDE [None]
